FAERS Safety Report 7915356-2 (Version None)
Quarter: 2011Q4

REPORT INFORMATION
  Report Type: 
  Country: None (occurrence: None)
  Receive Date: 20111115
  Receipt Date: 20111108
  Transmission Date: 20120403
  Serious: Yes (Hospitalization, Other)
  Sender: FDA-Public Use
  Company Number: PHHY2011FR94791

PATIENT
  Sex: Female
  Weight: 57 kg

DRUGS (4)
  1. FENOFIBRATE [Concomitant]
     Dosage: 160 MG, UNK
     Route: 048
     Dates: start: 20050101
  2. LORAZEPAM [Concomitant]
     Dosage: 1 MG, UNK
     Route: 048
  3. ONBREZ [Suspect]
     Indication: CHRONIC OBSTRUCTIVE PULMONARY DISEASE
     Dosage: 150 UG, UNK
     Dates: start: 20110929
  4. SYMBICORT [Concomitant]
     Dosage: UNK UKN, QD
     Dates: start: 20080101

REACTIONS (2)
  - ATRIAL FIBRILLATION [None]
  - ARRHYTHMIA [None]
